FAERS Safety Report 7778995-8 (Version None)
Quarter: 2011Q3

REPORT INFORMATION
  Report Type: 
  Country: None (occurrence: None)
  Receive Date: 20110926
  Receipt Date: 20110921
  Transmission Date: 20111222
  Serious: Yes (Other)
  Sender: FDA-Public Use
  Company Number: MX-BRISTOL-MYERS SQUIBB COMPANY-15999923

PATIENT
  Age: 47 Year
  Sex: Male

DRUGS (5)
  1. BORTEZOMIB [Suspect]
     Dosage: GIVEN 4 DOSES
     Dates: start: 20110701
  2. OMEPRAZOLE [Concomitant]
     Dosage: NOT INTERRUPTED IN THE ADMINISTRATION.
  3. DASATINIB [Suspect]
     Indication: CHRONIC MYELOID LEUKAEMIA
     Dosage: 07APR2011 TO 20JUN2011, RESTARTED ON 11JUL2011 AND SUSPENDED ON 19-AUG-2011.
     Route: 048
     Dates: start: 20110407, end: 20110819
  4. TRIMETHOPRIM + SULFAMETHOXAZOLE [Concomitant]
     Dosage: 1DF= 160/800MG, NOT INTERRUPTED IN THE ADMINISTRATION.
  5. ACYCLOVIR [Concomitant]
     Dosage: NOT INTERRUPTED IN THE ADMINISTRATION.

REACTIONS (3)
  - ANAEMIA [None]
  - COLITIS ULCERATIVE [None]
  - NEUTROPENIA [None]
